FAERS Safety Report 8847985 (Version 1)
Quarter: 2012Q4

REPORT INFORMATION
  Report Type: 
  Country: US (occurrence: US)
  Receive Date: 20121018
  Receipt Date: 20121018
  Transmission Date: 20130627
  Serious: Yes (Hospitalization, Other)
  Sender: FDA-Public Use
  Company Number: US-ROCHE-1140627

PATIENT
  Sex: Female

DRUGS (1)
  1. PROTROPIN [Suspect]
     Indication: GROWTH HORMONE DEFICIENCY
     Route: 058

REACTIONS (11)
  - Pyrexia [Unknown]
  - Scoliosis [Unknown]
  - Abdominal pain [Unknown]
  - Arthralgia [Unknown]
  - Diarrhoea [Unknown]
  - Contusion [Unknown]
  - Headache [Unknown]
  - Sinusitis [Unknown]
  - Respiratory disorder [Unknown]
  - Winged scapula [Unknown]
  - Dysuria [Unknown]
